FAERS Safety Report 7948460-3 (Version None)
Quarter: 2011Q4

REPORT INFORMATION
  Report Type: 
  Country: None (occurrence: None)
  Receive Date: 20111130
  Receipt Date: 20111121
  Transmission Date: 20120403
  Serious: Yes (Hospitalization)
  Sender: FDA-Public Use
  Company Number: FR-ASTELLAS-2011US007900

PATIENT
  Age: 81 Year
  Sex: Female

DRUGS (1)
  1. ERLOTINIB HYDROCHLORIDE [Suspect]
     Indication: ADENOCARCINOMA
     Dosage: 150 MG, UID/QD
     Route: 048

REACTIONS (1)
  - GASTROINTESTINAL TOXICITY [None]
